FAERS Safety Report 16922872 (Version 10)
Quarter: 2021Q1

REPORT INFORMATION
  Report Type: Report from Study
  Country: CA (occurrence: CA)
  Receive Date: 20191016
  Receipt Date: 20210202
  Transmission Date: 20210419
  Serious: Yes (Life-Threatening, Hospitalization)
  Sender: FDA-Public Use
  Company Number: CA-ROCHE-2439854

PATIENT
  Age: 52 Year
  Sex: Female
  Weight: 63.4 kg

DRUGS (92)
  1. DOXORUBICIN [Suspect]
     Active Substance: DOXORUBICIN
     Indication: HER2 POSITIVE BREAST CANCER
     Dosage: MOST RECENT DOSE PRIOR TO SAE 102 MG ON 30/APR/2019
     Route: 042
     Dates: start: 20190319
  2. TRASTUZUMAB. [Suspect]
     Active Substance: TRASTUZUMAB
     Dosage: MAINTENANCE DOSE?MOST RECENT DOSE PRIOR TO SAE AT 387 MG ON 16/JUL/2019
     Route: 042
  3. DECADRON [Concomitant]
     Active Substance: DEXAMETHASONE
     Route: 048
     Dates: start: 20190319, end: 20190319
  4. DECADRON [Concomitant]
     Active Substance: DEXAMETHASONE
     Route: 048
     Dates: start: 20190416, end: 20190416
  5. DECADRON [Concomitant]
     Active Substance: DEXAMETHASONE
     Route: 048
     Dates: start: 20190503, end: 20190503
  6. DECADRON [Concomitant]
     Active Substance: DEXAMETHASONE
     Route: 042
     Dates: start: 20190514, end: 20190514
  7. ZOFRAN [Concomitant]
     Active Substance: ONDANSETRON HYDROCHLORIDE
     Indication: VOMITING
     Dates: start: 20190402, end: 20190402
  8. BENADRYL [Concomitant]
     Active Substance: DIPHENHYDRAMINE HYDROCHLORIDE
     Dates: start: 20190730, end: 20190730
  9. IMODIUM [Concomitant]
     Active Substance: LOPERAMIDE HYDROCHLORIDE
     Indication: DIARRHOEA
     Dates: start: 20190604, end: 20190814
  10. LYRICA [Concomitant]
     Active Substance: PREGABALIN
     Indication: PAIN IN EXTREMITY
     Dates: start: 20190913, end: 20191015
  11. TRASTUZUMAB. [Suspect]
     Active Substance: TRASTUZUMAB
     Indication: HER2 POSITIVE BREAST CANCER
     Dosage: LOADING DOSE
     Route: 042
     Dates: start: 20190514
  12. DECADRON [Concomitant]
     Active Substance: DEXAMETHASONE
     Route: 048
     Dates: start: 20190501, end: 20190502
  13. DECADRON [Concomitant]
     Active Substance: DEXAMETHASONE
     Route: 042
     Dates: start: 20190709, end: 20190709
  14. PEGFILGRASTIM [Concomitant]
     Active Substance: PEGFILGRASTIM
     Dates: start: 20190403, end: 20190403
  15. TYLENOL [Concomitant]
     Active Substance: ACETAMINOPHEN
     Indication: MYALGIA
     Dates: start: 20190715, end: 20190715
  16. ZANTAC [Concomitant]
     Active Substance: RANITIDINE HYDROCHLORIDE
     Indication: DYSPEPSIA
     Dates: start: 20190504, end: 20200618
  17. DESITIN (CANADA) [Concomitant]
     Indication: CONSTIPATION
     Dates: start: 20190411
  18. RANITIDINE. [Concomitant]
     Active Substance: RANITIDINE
     Indication: PREMEDICATION
     Dates: start: 20190514, end: 20190514
  19. RANITIDINE. [Concomitant]
     Active Substance: RANITIDINE
     Dates: start: 20190618, end: 20190618
  20. DEXAMETHASONE. [Concomitant]
     Active Substance: DEXAMETHASONE
     Indication: PREMEDICATION
     Route: 042
     Dates: start: 20190618, end: 20190618
  21. CLOXACILINA [Concomitant]
     Active Substance: CLOXACILLIN
     Indication: NAIL INFECTION
     Dates: start: 20190621
  22. DURICEF [Concomitant]
     Active Substance: CEFADROXIL
     Indication: CELLULITIS
     Dates: start: 20190909, end: 20190916
  23. DILAUDID [Concomitant]
     Active Substance: HYDROMORPHONE HYDROCHLORIDE
     Indication: PAIN IN EXTREMITY
     Dates: start: 20190909, end: 20200528
  24. MAXERAN [Concomitant]
     Active Substance: METOCLOPRAMIDE HYDROCHLORIDE
     Indication: VOMITING
     Dates: start: 20190920, end: 20190921
  25. DECADRON [Concomitant]
     Active Substance: DEXAMETHASONE
     Indication: PREMEDICATION
     Route: 048
     Dates: start: 20190322, end: 20190322
  26. DECADRON [Concomitant]
     Active Substance: DEXAMETHASONE
     Route: 048
     Dates: start: 20190403, end: 20190404
  27. PEGFILGRASTIM [Concomitant]
     Active Substance: PEGFILGRASTIM
     Indication: PROPHYLAXIS
     Dates: start: 20190320, end: 20190320
  28. LORAZEPAM. [Concomitant]
     Active Substance: LORAZEPAM
     Indication: PREMEDICATION
     Dates: start: 20190319, end: 20190319
  29. LORAZEPAM. [Concomitant]
     Active Substance: LORAZEPAM
     Dates: start: 20190430, end: 20190430
  30. RANITIDINE. [Concomitant]
     Active Substance: RANITIDINE
     Dates: start: 20190603, end: 20190603
  31. RANITIDINE. [Concomitant]
     Active Substance: RANITIDINE
     Dates: start: 20190703, end: 20190703
  32. RANITIDINE. [Concomitant]
     Active Substance: RANITIDINE
     Dates: start: 20190723, end: 20190723
  33. PLACEBO [Suspect]
     Active Substance: UNSPECIFIED INGREDIENT
     Indication: HER2 POSITIVE BREAST CANCER
     Dosage: DATE OF MOST RECENT DOSE PRIOR TO SAE: 16/SEP/2019
     Route: 042
     Dates: start: 20190319, end: 20190916
  34. DECADRON [Concomitant]
     Active Substance: DEXAMETHASONE
     Route: 048
     Dates: start: 20190417, end: 20190418
  35. DECADRON [Concomitant]
     Active Substance: DEXAMETHASONE
     Route: 042
     Dates: start: 20190611, end: 20190611
  36. DECADRON [Concomitant]
     Active Substance: DEXAMETHASONE
     Route: 042
     Dates: start: 20190625, end: 20190625
  37. PEGFILGRASTIM [Concomitant]
     Active Substance: PEGFILGRASTIM
     Dates: start: 20190501, end: 20190501
  38. LORAZEPAM. [Concomitant]
     Active Substance: LORAZEPAM
     Dates: start: 20190416, end: 20190416
  39. LORAZEPAM. [Concomitant]
     Active Substance: LORAZEPAM
     Dates: start: 20190603, end: 20190603
  40. BENADRYL [Concomitant]
     Active Substance: DIPHENHYDRAMINE HYDROCHLORIDE
     Dates: start: 20190521, end: 20190521
  41. BENADRYL [Concomitant]
     Active Substance: DIPHENHYDRAMINE HYDROCHLORIDE
     Dates: start: 20190625, end: 20190625
  42. ZOPICLONE [Concomitant]
     Active Substance: ZOPICLONE
     Indication: INSOMNIA
     Dates: start: 20190326, end: 20200618
  43. TYLENOL [Concomitant]
     Active Substance: ACETAMINOPHEN
     Indication: HEADACHE
     Dates: start: 20190324
  44. PACKED RED BLOOD CELLS [Concomitant]
     Active Substance: HUMAN RED BLOOD CELL
     Indication: ANAEMIA
     Dates: start: 20190923, end: 20190924
  45. ZOLADEX [Concomitant]
     Active Substance: GOSERELIN ACETATE
     Dates: start: 20200127
  46. CYCLOPHOSPHAMIDE. [Suspect]
     Active Substance: CYCLOPHOSPHAMIDE
     Indication: HER2 POSITIVE BREAST CANCER
     Dosage: MOST RECENT DOSE PRIOR TO SAE AT 1020 MG ON 30/APR/2019.
     Route: 042
     Dates: start: 20190319
  47. PERTUZUMAB. [Suspect]
     Active Substance: PERTUZUMAB
     Dosage: MAINTENANCE DOSE?MOST RECENT DOSE PRIOR TO SAE AT 420 MG ON 16/JUL/2019.
     Route: 042
  48. STEMETIL [Concomitant]
     Active Substance: PROCHLORPERAZINE
     Indication: PROPHYLAXIS
     Dates: start: 20190319, end: 20190814
  49. ZOFRAN [Concomitant]
     Active Substance: ONDANSETRON HYDROCHLORIDE
     Dates: start: 20190920, end: 20190921
  50. LORAZEPAM. [Concomitant]
     Active Substance: LORAZEPAM
     Dates: start: 20190625, end: 20190625
  51. BENADRYL [Concomitant]
     Active Substance: DIPHENHYDRAMINE HYDROCHLORIDE
     Dates: start: 20190618, end: 20190618
  52. BENADRYL [Concomitant]
     Active Substance: DIPHENHYDRAMINE HYDROCHLORIDE
     Dates: start: 20190709, end: 20190709
  53. RANITIDINE. [Concomitant]
     Active Substance: RANITIDINE
     Dates: start: 20190521, end: 20190521
  54. RANITIDINE. [Concomitant]
     Active Substance: RANITIDINE
     Dates: start: 20190528, end: 20190528
  55. RANITIDINE. [Concomitant]
     Active Substance: RANITIDINE
     Dates: start: 20190730, end: 20190730
  56. DECADRON [Concomitant]
     Active Substance: DEXAMETHASONE
     Route: 048
     Dates: start: 20190405, end: 20190405
  57. DECADRON [Concomitant]
     Active Substance: DEXAMETHASONE
     Route: 042
     Dates: start: 20190528, end: 20190528
  58. DECADRON [Concomitant]
     Active Substance: DEXAMETHASONE
     Route: 042
     Dates: start: 20190603, end: 20190603
  59. BENADRYL [Concomitant]
     Active Substance: DIPHENHYDRAMINE HYDROCHLORIDE
     Dates: start: 20190528, end: 20190528
  60. TRASTUZUMAB EMTANSINE [Suspect]
     Active Substance: ADO-TRASTUZUMAB EMTANSINE
     Indication: HER2 POSITIVE BREAST CANCER
     Dosage: MOST RECENT DOSE OF TRASTUZUMAB EMANTASINE: 16/SEP/2019 (247 MG)
     Route: 042
     Dates: start: 20190916
  61. DECADRON [Concomitant]
     Active Substance: DEXAMETHASONE
     Route: 048
     Dates: start: 20190402, end: 20190402
  62. DECADRON [Concomitant]
     Active Substance: DEXAMETHASONE
     Route: 048
     Dates: start: 20190419, end: 20190419
  63. DECADRON [Concomitant]
     Active Substance: DEXAMETHASONE
     Route: 042
     Dates: start: 20190703, end: 20190703
  64. DECADRON [Concomitant]
     Active Substance: DEXAMETHASONE
     Route: 042
     Dates: start: 20190716, end: 20190716
  65. PEGFILGRASTIM [Concomitant]
     Active Substance: PEGFILGRASTIM
     Dates: start: 20190417, end: 20190417
  66. LORAZEPAM. [Concomitant]
     Active Substance: LORAZEPAM
     Dates: start: 20190402, end: 20190402
  67. LORAZEPAM. [Concomitant]
     Active Substance: LORAZEPAM
     Dates: start: 20190528, end: 20190528
  68. BENADRYL [Concomitant]
     Active Substance: DIPHENHYDRAMINE HYDROCHLORIDE
     Indication: INSOMNIA
     Dates: start: 20190322, end: 20190323
  69. BENADRYL [Concomitant]
     Active Substance: DIPHENHYDRAMINE HYDROCHLORIDE
     Indication: PREMEDICATION
     Dates: start: 20190514, end: 20190514
  70. BENADRYL [Concomitant]
     Active Substance: DIPHENHYDRAMINE HYDROCHLORIDE
     Dates: start: 20190603, end: 20190603
  71. BENADRYL [Concomitant]
     Active Substance: DIPHENHYDRAMINE HYDROCHLORIDE
     Dates: start: 20190703, end: 20190703
  72. BENADRYL [Concomitant]
     Active Substance: DIPHENHYDRAMINE HYDROCHLORIDE
     Dates: start: 20190716, end: 20190716
  73. BENADRYL [Concomitant]
     Active Substance: DIPHENHYDRAMINE HYDROCHLORIDE
     Dates: start: 20190723, end: 20190723
  74. RANITIDINE. [Concomitant]
     Active Substance: RANITIDINE
     Dates: start: 20190709, end: 20190709
  75. RANITIDINE. [Concomitant]
     Active Substance: RANITIDINE
     Dates: start: 20190716, end: 20190716
  76. LAX?A?DAY [Concomitant]
     Active Substance: POLYETHYLENE GLYCOL 3350
     Indication: CONSTIPATION
     Dates: start: 20190403, end: 20190528
  77. PACLITAXEL. [Suspect]
     Active Substance: PACLITAXEL
     Indication: HER2 POSITIVE BREAST CANCER
     Dosage: WEEKLY?MOST RECENT DOSE PRIOR TO SAE AT 136 MG ON 30/JUL/2019
     Route: 042
     Dates: start: 20190514
  78. PERTUZUMAB. [Suspect]
     Active Substance: PERTUZUMAB
     Indication: HER2 POSITIVE BREAST CANCER
     Dosage: LOADING DOSE
     Route: 042
     Dates: start: 20190514
  79. DECADRON [Concomitant]
     Active Substance: DEXAMETHASONE
     Indication: PROPHYLAXIS
     Route: 048
     Dates: start: 20190320, end: 20190321
  80. DECADRON [Concomitant]
     Active Substance: DEXAMETHASONE
     Route: 048
     Dates: start: 20190430, end: 20190430
  81. DECADRON [Concomitant]
     Active Substance: DEXAMETHASONE
     Route: 042
     Dates: start: 20190521, end: 20190521
  82. DECADRON [Concomitant]
     Active Substance: DEXAMETHASONE
     Route: 042
     Dates: start: 20190723, end: 20190723
  83. DECADRON [Concomitant]
     Active Substance: DEXAMETHASONE
     Route: 042
     Dates: start: 20190730, end: 20190730
  84. ZOFRAN [Concomitant]
     Active Substance: ONDANSETRON HYDROCHLORIDE
     Indication: PREMEDICATION
     Dates: start: 20190319, end: 20190319
  85. ZOFRAN [Concomitant]
     Active Substance: ONDANSETRON HYDROCHLORIDE
     Dates: start: 20190416, end: 20190416
  86. ZOFRAN [Concomitant]
     Active Substance: ONDANSETRON HYDROCHLORIDE
     Dates: start: 20190430, end: 20190430
  87. LORAZEPAM. [Concomitant]
     Active Substance: LORAZEPAM
     Dates: start: 20190514, end: 20190514
  88. LORAZEPAM. [Concomitant]
     Active Substance: LORAZEPAM
     Dates: start: 20190521, end: 20190521
  89. BENADRYL [Concomitant]
     Active Substance: DIPHENHYDRAMINE HYDROCHLORIDE
     Dates: start: 20190611, end: 20190611
  90. RANITIDINE. [Concomitant]
     Active Substance: RANITIDINE
     Dates: start: 20190611, end: 20190611
  91. NAPROXEN. [Concomitant]
     Active Substance: NAPROXEN
     Indication: PAIN IN EXTREMITY
     Dates: start: 20190909, end: 20200528
  92. ATIVAN [Concomitant]
     Active Substance: LORAZEPAM
     Indication: INSOMNIA
     Dates: start: 20190923, end: 20200618

REACTIONS (1)
  - Pulmonary embolism [Recovering/Resolving]

NARRATIVE: CASE EVENT DATE: 20191009
